FAERS Safety Report 5110270-2 (Version None)
Quarter: 2006Q3

REPORT INFORMATION
  Report Type: 
  Country: None (occurrence: None)
  Receive Date: 20060921
  Receipt Date: 20060913
  Transmission Date: 20061208
  Serious: Yes (Other)
  Sender: FDA-Public Use
  Company Number: FR-GLAXOSMITHKLINE-B0438161A

PATIENT
  Age: 48 Year
  Sex: Male

DRUGS (2)
  1. AVANDAMET [Suspect]
     Route: 048
     Dates: start: 20050901
  2. LIPANTHYL [Concomitant]
     Route: 065

REACTIONS (2)
  - RASH PAPULAR [None]
  - TRANSAMINASES INCREASED [None]
